FAERS Safety Report 9799227 (Version 1)
Quarter: 2014Q1

REPORT INFORMATION
  Report Type: Spontaneous
  Country: US (occurrence: None)
  Receive Date: 20140103
  Receipt Date: 20140103
  Transmission Date: 20141002
  Serious: Yes (Other)
  Sender: FDA-Public Use
  Company Number: None

PATIENT
  Age: 70 None
  Sex: Female
  Weight: 72.58 kg

DRUGS (6)
  1. OMEPRAZOLE [Suspect]
     Indication: GASTROOESOPHAGEAL REFLUX DISEASE
     Dosage: 2 CAPS,  ONCE A DAY, BY MOUTH
     Route: 048
     Dates: start: 20130921, end: 20131001
  2. ALPHAGAN P. [Concomitant]
  3. LUMIGAN [Concomitant]
  4. ZOLPIDEM [Concomitant]
  5. CLONAZEPAM [Concomitant]
  6. OMEPRAZOLE [Concomitant]

REACTIONS (3)
  - X-ray gastrointestinal tract abnormal [None]
  - Product substitution issue [None]
  - Drug ineffective [None]
